FAERS Safety Report 9385220 (Version 1)
Quarter: 2013Q3

REPORT INFORMATION
  Report Type: Spontaneous
  Country: FR (occurrence: FR)
  Receive Date: 20130705
  Receipt Date: 20130705
  Transmission Date: 20140515
  Serious: Yes (Life-Threatening)
  Sender: FDA-Public Use
  Company Number: FR-BAXTER-2013BAX024397

PATIENT
  Age: 63 Year
  Sex: Female

DRUGS (4)
  1. SEVOFLURANE BAXTER 1 ML/ML, LIQUIDE POUR INHALATION PAR VAPEUR [Suspect]
     Indication: ANAESTHESIA
     Route: 055
     Dates: start: 20110624, end: 20110624
  2. PROPOFOL [Suspect]
     Indication: ANAESTHESIA
     Route: 042
     Dates: start: 20110624, end: 20110624
  3. ULTIVA [Suspect]
     Indication: ANAESTHESIA
     Route: 042
     Dates: start: 20110624, end: 20110624
  4. VANCOMYCINE [Suspect]
     Indication: ANTIBIOTIC PROPHYLAXIS
     Route: 042
     Dates: start: 20110624, end: 20110624

REACTIONS (1)
  - Circulatory collapse [Recovered/Resolved]
